FAERS Safety Report 10908565 (Version 1)
Quarter: 2015Q1

REPORT INFORMATION
  Report Type: Spontaneous
  Country: US (occurrence: None)
  Receive Date: 20150309
  Receipt Date: 20150309
  Transmission Date: 20150721
  Serious: No
  Sender: FDA-Public Use
  Company Number: None

PATIENT
  Age: 56 Year
  Sex: Female
  Weight: 88 kg

DRUGS (12)
  1. VENTOLIN [Concomitant]
     Active Substance: ALBUTEROL SULFATE
  2. SPIRIVA [Concomitant]
     Active Substance: TIOTROPIUM BROMIDE MONOHYDRATE
  3. ANTENO [Concomitant]
  4. ACCOLATE [Concomitant]
     Active Substance: ZAFIRLUKAST
  5. XANAX [Concomitant]
     Active Substance: ALPRAZOLAM
  6. TRAMADOL HCL [Suspect]
     Active Substance: TRAMADOL HYDROCHLORIDE
     Indication: MUSCULOSKELETAL PAIN
     Dosage: ONE TABLET EVERY 6 HOURS AS N, FOUR TIMES DAILY, ORALLY
     Route: 048
  7. LANSOPRAZOLE DR30EXT [Concomitant]
  8. ADVAIR HFA [Concomitant]
     Active Substance: FLUTICASONE PROPIONATE\SALMETEROL XINAFOATE
  9. LEVOTHYROXINE SOD [Concomitant]
  10. NORVASC [Concomitant]
     Active Substance: AMLODIPINE BESYLATE
  11. COZAAR [Concomitant]
     Active Substance: LOSARTAN POTASSIUM
  12. HYDROCODINE [Concomitant]

REACTIONS (5)
  - Hypoaesthesia [None]
  - Dyspnoea [None]
  - Somnolence [None]
  - Chest discomfort [None]
  - Muscle twitching [None]

NARRATIVE: CASE EVENT DATE: 20150307
